FAERS Safety Report 15503049 (Version 1)
Quarter: 2018Q4

REPORT INFORMATION
  Report Type: Spontaneous
  Country: US (occurrence: US)
  Receive Date: 20181008
  Receipt Date: 20181008
  Transmission Date: 20190205
  Serious: Yes (Other)
  Sender: FDA-Public Use
  Company Number: None

PATIENT
  Age: 80 Year
  Sex: Male
  Weight: 67.3 kg

DRUGS (1)
  1. GAZYVA [Suspect]
     Active Substance: OBINUTUZUMAB
     Indication: B-CELL LYMPHOMA
     Route: 041
     Dates: start: 20180801, end: 20180801

REACTIONS (5)
  - Cough [None]
  - Throat irritation [None]
  - Therapy cessation [None]
  - Groin pain [None]
  - Chills [None]

NARRATIVE: CASE EVENT DATE: 20180801
